FAERS Safety Report 10723193 (Version 4)
Quarter: 2016Q1

REPORT INFORMATION
  Report Type: Spontaneous
  Country: US (occurrence: US)
  Receive Date: 20150120
  Receipt Date: 20160205
  Transmission Date: 20160525
  Serious: No
  Sender: FDA-Public Use
  Company Number: US-PFIZER INC-2015019307

PATIENT
  Age: 56 Year
  Sex: Female
  Weight: 129 kg

DRUGS (6)
  1. GABAPENTIN. [Suspect]
     Active Substance: GABAPENTIN
     Indication: NEURALGIA
     Dosage: UNK
     Dates: start: 2013
  2. VIVELLE-DOT [Concomitant]
     Active Substance: ESTRADIOL
     Indication: OESTROGEN REPLACEMENT THERAPY
  3. GABAPENTIN. [Suspect]
     Active Substance: GABAPENTIN
     Dosage: ^DROPPED THE DOSE BY EVEN 25MG^
     Dates: end: 201410
  4. CLONIDINE. [Concomitant]
     Active Substance: CLONIDINE
     Dosage: 1 MG, WEEKLY
     Route: 062
  5. HYDROCODONE [Concomitant]
     Active Substance: HYDROCODONE
  6. LISINOPRIL. [Concomitant]
     Active Substance: LISINOPRIL
     Dosage: 5 MG, UNK

REACTIONS (6)
  - Pain in extremity [Unknown]
  - Drug withdrawal syndrome [Unknown]
  - Arthralgia [Unknown]
  - Drug ineffective [Unknown]
  - Myalgia [Unknown]
  - Feeling abnormal [Unknown]
